FAERS Safety Report 5678080-5 (Version None)
Quarter: 2008Q1

REPORT INFORMATION
  Report Type: 
  Country: None (occurrence: None)
  Receive Date: 20080324
  Receipt Date: 20080324
  Transmission Date: 20080703
  Serious: Yes (Other)
  Sender: FDA-Public Use
  Company Number: None

PATIENT
  Age: 50 Year
  Sex: Female
  Weight: 59.8748 kg

DRUGS (1)
  1. METOPROLOL SUCCINATE EXTENDED RELEASE [Suspect]
     Indication: HYPERTENSION
     Dosage: 1 TABLET 1 PER DAY PO
     Route: 048
     Dates: start: 20071220, end: 20080124

REACTIONS (36)
  - AGORAPHOBIA [None]
  - ALOPECIA [None]
  - ANGER [None]
  - ANXIETY [None]
  - ARTHRALGIA [None]
  - ASTHENIA [None]
  - BLOOD PRESSURE INCREASED [None]
  - DIARRHOEA [None]
  - DIZZINESS [None]
  - DRUG WITHDRAWAL SYNDROME [None]
  - DYSPNOEA [None]
  - EYELID PTOSIS [None]
  - FATIGUE [None]
  - FOOD CRAVING [None]
  - FRUSTRATION [None]
  - GAIT DISTURBANCE [None]
  - HANGOVER [None]
  - HEART RATE INCREASED [None]
  - HOT FLUSH [None]
  - INCREASED APPETITE [None]
  - INSOMNIA [None]
  - JOINT SWELLING [None]
  - MENTAL IMPAIRMENT [None]
  - MUSCLE SPASMS [None]
  - MUSCULAR WEAKNESS [None]
  - NEUROPATHY PERIPHERAL [None]
  - NIGHT SWEATS [None]
  - OEDEMA PERIPHERAL [None]
  - PAIN IN EXTREMITY [None]
  - RASH PRURITIC [None]
  - RAYNAUD'S PHENOMENON [None]
  - RHINORRHOEA [None]
  - SOMNAMBULISM [None]
  - THINKING ABNORMAL [None]
  - TREMOR [None]
  - VISION BLURRED [None]
